FAERS Safety Report 6415840-7 (Version None)
Quarter: 2009Q4

REPORT INFORMATION
  Report Type: 
  Country: None (occurrence: None)
  Receive Date: 20091023
  Receipt Date: 20091019
  Transmission Date: 20100525
  Serious: Yes (Death)
  Sender: FDA-Public Use
  Company Number: DSA_34111_2009

PATIENT
  Sex: Female
  Weight: 72.5755 kg

DRUGS (2)
  1. XENAZINE [Suspect]
     Indication: TARDIVE DYSKINESIA
     Dosage: (12.5 MG QD, IN THE EVENING)
     Dates: start: 20090723, end: 20090725
  2. PRILOSEC [Concomitant]

REACTIONS (7)
  - AMNESIA [None]
  - DECREASED APPETITE [None]
  - INSOMNIA [None]
  - NAUSEA [None]
  - PNEUMONIA [None]
  - TREMOR [None]
  - VOMITING [None]
